FAERS Safety Report 5476522-1 (Version None)
Quarter: 2007Q3

REPORT INFORMATION
  Report Type: 
  Country: None (occurrence: None)
  Receive Date: 20070924
  Receipt Date: 20060810
  Transmission Date: 20080115
  Serious: Yes (Other)
  Sender: FDA-Public Use
  Company Number: PHEH2006US10243

PATIENT
  Sex: Female

DRUGS (6)
  1. FEMARA [Suspect]
     Indication: BREAST CANCER
     Dosage: 2.5 MG, QD, ORAL
     Route: 048
     Dates: start: 20060403
  2. DIAZIDE (GLICLAZIDE) [Concomitant]
  3. PRINIVIL [Concomitant]
  4. NAPROSYN [Concomitant]
  5. ARIMIDEX [Concomitant]
  6. TAMOXIFEN CITRATE [Concomitant]

REACTIONS (3)
  - AGGRESSION [None]
  - DEPRESSION [None]
  - MOOD SWINGS [None]
